FAERS Safety Report 12661533 (Version 5)
Quarter: 2017Q1

REPORT INFORMATION
  Report Type: Spontaneous
  Country: US (occurrence: US)
  Receive Date: 20160817
  Receipt Date: 20170103
  Transmission Date: 20170428
  Serious: Yes (Hospitalization)
  Sender: FDA-Public Use
  Company Number: US-PFIZER INC-2016386040

PATIENT
  Age: 66 Year
  Sex: Female

DRUGS (4)
  1. LYRICA [Suspect]
     Active Substance: PREGABALIN
     Indication: FIBROMYALGIA
     Dosage: 25 MG, UNK
     Dates: start: 201306
  2. KLONOPIN [Concomitant]
     Active Substance: CLONAZEPAM
     Dosage: UNK
  3. LYRICA [Suspect]
     Active Substance: PREGABALIN
     Dosage: 50 MG, UNK
  4. XANAX [Concomitant]
     Active Substance: ALPRAZOLAM
     Dosage: UNK

REACTIONS (23)
  - Condition aggravated [Not Recovered/Not Resolved]
  - Nervousness [Unknown]
  - Tremor [Unknown]
  - Agitation [Unknown]
  - Insomnia [Unknown]
  - Anxiety [Not Recovered/Not Resolved]
  - Depression [Not Recovered/Not Resolved]
  - Aggression [Unknown]
  - Confusional state [Not Recovered/Not Resolved]
  - Fatigue [Unknown]
  - Nausea [Unknown]
  - Drug ineffective [Unknown]
  - Restlessness [Unknown]
  - Oropharyngeal pain [Unknown]
  - Heart rate irregular [Unknown]
  - Anger [Unknown]
  - Extrasystoles [Not Recovered/Not Resolved]
  - Weight decreased [Unknown]
  - Balance disorder [Unknown]
  - Mood altered [Unknown]
  - Euphoric mood [Unknown]
  - Dyspnoea [Unknown]
  - Pain [Unknown]
